FAERS Safety Report 4626207-6 (Version None)
Quarter: 2005Q2

REPORT INFORMATION
  Report Type: 
  Country: None (occurrence: None)
  Receive Date: 20050404
  Receipt Date: 20050324
  Transmission Date: 20051028
  Serious: Yes (Other)
  Sender: FDA-Public Use
  Company Number: US-JNJFOC-20050104560

PATIENT
  Sex: Female
  Weight: 55.79 kg

DRUGS (3)
  1. TYLENOL (CAPLET) [Suspect]
  2. TYLENOL (CAPLET) [Suspect]
     Indication: PAIN
  3. SYNTHROID [Concomitant]

REACTIONS (2)
  - DYSPHAGIA [None]
  - RETCHING [None]
